FAERS Safety Report 15890154 (Version 2)
Quarter: 2020Q4

REPORT INFORMATION
  Report Type: Spontaneous
  Country: US (occurrence: US)
  Receive Date: 20190130
  Receipt Date: 20201009
  Transmission Date: 20210113
  Serious: Yes (Other)
  Sender: FDA-Public Use
  Company Number: US-ABBVIE-18S-163-2384460-00

PATIENT
  Sex: Male

DRUGS (2)
  1. XTANDI [Suspect]
     Active Substance: ENZALUTAMIDE
     Indication: PROSTATE CANCER
     Route: 048
     Dates: start: 2016
  2. LUPRON [Suspect]
     Active Substance: LEUPROLIDE ACETATE
     Indication: PRODUCT USED FOR UNKNOWN INDICATION
     Route: 065

REACTIONS (10)
  - Gait disturbance [Unknown]
  - Fatigue [Not Recovered/Not Resolved]
  - Paranasal sinus hypersecretion [Not Recovered/Not Resolved]
  - Neuropathy peripheral [Unknown]
  - Hot flush [Not Recovered/Not Resolved]
  - Taste disorder [Not Recovered/Not Resolved]
  - Malignant neoplasm progression [Unknown]
  - Joint swelling [Unknown]
  - Therapeutic product effect decreased [Unknown]
  - Sciatica [Unknown]
